FAERS Safety Report 6611140-0 (Version None)
Quarter: 2010Q1

REPORT INFORMATION
  Report Type: 
  Country: None (occurrence: None)
  Receive Date: 20100302
  Receipt Date: 20100302
  Transmission Date: 20100710
  Serious: Yes (Hospitalization)
  Sender: FDA-Public Use
  Company Number: None

PATIENT
  Age: 77 Year
  Sex: Female
  Weight: 52.6 kg

DRUGS (12)
  1. COUMADIN [Suspect]
     Indication: ATRIAL FIBRILLATION
     Dosage: 2MG DAILY PO CHRONIC
     Route: 048
  2. COUMADIN [Suspect]
     Indication: ATRIAL FIBRILLATION
     Dosage: 4MG 4 DAY PER WEEK PO CHRONIC
     Route: 048
  3. CALCITONIN NS [Concomitant]
  4. LASIX [Concomitant]
  5. LEVOTHYROXINE SODIUM [Concomitant]
  6. SPIRIVA [Concomitant]
  7. TYLENOL-500 [Concomitant]
  8. OLMESARTAN [Concomitant]
  9. PROTONIX [Concomitant]
  10. VIT D [Concomitant]
  11. ZOLPIDEM [Concomitant]
  12. BIFIDOBACTERUM-LACTOBACILLIS [Concomitant]

REACTIONS (6)
  - ARTERIOVENOUS MALFORMATION [None]
  - DIARRHOEA [None]
  - DYSPEPSIA [None]
  - ELECTROCARDIOGRAM ST SEGMENT ABNORMAL [None]
  - GASTROINTESTINAL HAEMORRHAGE [None]
  - HYPOCALCAEMIA [None]
